FAERS Safety Report 13739133 (Version 1)
Quarter: 2017Q3

REPORT INFORMATION
  Report Type: Spontaneous
  Country: US (occurrence: US)
  Receive Date: 20170710
  Receipt Date: 20170710
  Transmission Date: 20171127
  Serious: No
  Sender: FDA-Public Use
  Company Number: US-SAOL THERAPEUTICS-2017SAO00858

PATIENT
  Sex: Male

DRUGS (5)
  1. BACLOFEN. [Suspect]
     Active Substance: BACLOFEN
     Indication: PAIN
     Dosage: 199.38 ?G, \DAY
     Route: 037
  2. CLONIDINE. [Suspect]
     Active Substance: CLONIDINE
     Dosage: 79.75 ?G, \DAY
     Route: 037
  3. BUPIVACAINE. [Suspect]
     Active Substance: BUPIVACAINE
     Dosage: 13.957 MG, \DAY
     Route: 037
  4. FENTANYL. [Suspect]
     Active Substance: FENTANYL
     Dosage: 196.3 ?G, \DAY
     Route: 037
  5. BACLOFEN. [Suspect]
     Active Substance: BACLOFEN
     Indication: POST LAMINECTOMY SYNDROME

REACTIONS (7)
  - Back pain [Not Recovered/Not Resolved]
  - Device infusion issue [Unknown]
  - Therapeutic response decreased [Not Recovered/Not Resolved]
  - Off label use [Unknown]
  - Weight decreased [Unknown]
  - Posture abnormal [Not Recovered/Not Resolved]
  - Soft tissue injury [Unknown]

NARRATIVE: CASE EVENT DATE: 2012
